FAERS Safety Report 13182502 (Version 3)
Quarter: 2017Q1

REPORT INFORMATION
  Report Type: Spontaneous
  Country: GR (occurrence: GR)
  Receive Date: 20170202
  Receipt Date: 20170315
  Transmission Date: 20170428
  Serious: Yes (Hospitalization)
  Sender: FDA-Public Use
  Company Number: GR-BIOGEN-2017BI00338869

PATIENT

DRUGS (2)
  1. AVONEX [Suspect]
     Active Substance: INTERFERON BETA-1A
     Route: 030
     Dates: start: 201307, end: 20161202
  2. AVONEX [Suspect]
     Active Substance: INTERFERON BETA-1A
     Indication: RELAPSING-REMITTING MULTIPLE SCLEROSIS
     Route: 030
     Dates: start: 20130710, end: 20160624

REACTIONS (3)
  - Drug ineffective [Unknown]
  - Myelitis transverse [Recovered/Resolved]
  - Optic neuritis [Recovered/Resolved]

NARRATIVE: CASE EVENT DATE: 20141115
